FAERS Safety Report 25480174 (Version 1)
Quarter: 2025Q2

REPORT INFORMATION
  Report Type: Spontaneous
  Country: FR (occurrence: FR)
  Receive Date: 20250625
  Receipt Date: 20250625
  Transmission Date: 20250717
  Serious: Yes (Other)
  Sender: ABBVIE
  Company Number: FR-ABBVIE-6339570

PATIENT

DRUGS (1)
  1. ELAHERE [Suspect]
     Active Substance: MIRVETUXIMAB SORAVTANSINE-GYNX
     Indication: Product used for unknown indication
     Route: 042

REACTIONS (9)
  - Malignant neoplasm progression [Unknown]
  - Keratitis [Recovering/Resolving]
  - Fatigue [Unknown]
  - Eye pain [Unknown]
  - Visual impairment [Unknown]
  - Abdominal pain [Unknown]
  - Gastrointestinal toxicity [Unknown]
  - Nausea [Unknown]
  - Diarrhoea [Unknown]
